FAERS Safety Report 5043228-2 (Version None)
Quarter: 2006Q2

REPORT INFORMATION
  Report Type: 
  Country: None (occurrence: None)
  Receive Date: 20060627
  Receipt Date: 20060619
  Transmission Date: 20061013
  Serious: Yes (Life-Threatening, Hospitalization)
  Sender: FDA-Public Use
  Company Number: UKP06000161

PATIENT
  Age: 83 Year
  Sex: Female

DRUGS (4)
  1. DIDRONEL [Suspect]
     Indication: OSTEOPOROSIS
     Dosage: 1 TABLET, DAILY, ORAL
     Route: 048
     Dates: start: 20030701, end: 20060501
  2. BENDROFLUMETHIAZIDE [Concomitant]
  3. OMACOR (OMEGA-3 MARINE TRIGLYCERIDES) [Concomitant]
  4. RAMIPRIL [Concomitant]

REACTIONS (3)
  - HAEMATEMESIS [None]
  - NAUSEA [None]
  - ULCER [None]
